FAERS Safety Report 23737651 (Version 4)
Quarter: 2024Q3

REPORT INFORMATION
  Report Type: Report from Study
  Country: US (occurrence: US)
  Receive Date: 20240412
  Receipt Date: 20240812
  Transmission Date: 20241017
  Serious: Yes (Hospitalization, Other)
  Sender: BAXTER
  Company Number: US-BAXTER-2024BAX016252

PATIENT
  Age: 78 Year
  Sex: Female
  Weight: 69.9 kg

DRUGS (19)
  1. CYCLOPHOSPHAMIDE [Suspect]
     Active Substance: CYCLOPHOSPHAMIDE
     Indication: Philadelphia chromosome negative
     Dosage: 150 MG/M2, EVERY 12 HRS X 6 DOSES, (DAYS 1-3, CYCLE: 1, 3, 5, 7), CYCLICAL AS A PART OF INOTUZUMAB O
     Route: 042
     Dates: start: 20240125
  2. CYCLOPHOSPHAMIDE [Suspect]
     Active Substance: CYCLOPHOSPHAMIDE
     Indication: B-cell type acute leukaemia
     Dosage: 150 MG/M2, EVERY 12 HRS, LAST DOSE ADMINISTERED PRIOR TO EVENT
     Route: 042
     Dates: start: 20240128, end: 20240128
  3. MESNA [Suspect]
     Active Substance: MESNA
     Indication: Philadelphia chromosome negative
     Dosage: 300 MG/M2, SCHEDULE: DAYS 1-3; CYCLE: 1, 3, 5, 7 (CYCLICAL), 1620 MG GIVEN CYCLE 1), ONGOING
     Route: 042
     Dates: start: 20240125, end: 20240127
  4. MESNA [Suspect]
     Active Substance: MESNA
     Indication: B-cell type acute leukaemia
  5. DEXAMETHASONE [Suspect]
     Active Substance: DEXAMETHASONE
     Indication: Philadelphia chromosome negative
     Dosage: 20 MG (SCHEDULE: DAYS 1-4, DAYS 11-14; CYCLE: 1, 3, 5, 7, CYCLICAL), ONGOING
     Route: 065
     Dates: start: 20240125
  6. DEXAMETHASONE [Suspect]
     Active Substance: DEXAMETHASONE
     Indication: B-cell type acute leukaemia
  7. INOTUZUMAB OZOGAMICIN [Suspect]
     Active Substance: INOTUZUMAB OZOGAMICIN
     Indication: Philadelphia chromosome negative
     Dosage: C1: 0.6 MG/M2 D2, 0.3 MG/M2 D8 (TOTAL 0.9 MG/M2); C2-C4 0.3 MG/M2 D2, 0.3 MG/M2 D8 (TOTAL 0.6 MG/M2,
     Route: 042
     Dates: start: 20240126
  8. INOTUZUMAB OZOGAMICIN [Suspect]
     Active Substance: INOTUZUMAB OZOGAMICIN
     Indication: B-cell type acute leukaemia
     Dosage: 0.3 MG/M2, CYCLICAL, LAST DOSE ADMINISTERED PRIOR TO EVENT
     Route: 042
     Dates: start: 20240227, end: 20240227
  9. CYTARABINE [Suspect]
     Active Substance: CYTARABINE
     Indication: Philadelphia chromosome negative
     Dosage: 100 MG, SCHEDULE: DAY 2, DAY 8; CYCLE: 1-4, CYCLICAL
     Route: 037
     Dates: start: 20240217
  10. CYTARABINE [Suspect]
     Active Substance: CYTARABINE
     Indication: B-cell type acute leukaemia
     Dosage: 0.5 G/M2/DOSE, SCHEDULE: EVERY 12 HRS X 4 DOSES, DAYS 2, 3. CYCLE: 2, 4, 6, 8, (CYCLIC, TOTAL DOSE A
     Route: 042
     Dates: start: 20240218
  11. CYTARABINE [Suspect]
     Active Substance: CYTARABINE
     Dosage: UNK, CYCLIC, LAST DOSE ADMINISTERED PRIOR TO EVENT
     Route: 042
     Dates: start: 20240220, end: 20240220
  12. METHOTREXATE SODIUM [Suspect]
     Active Substance: METHOTREXATE SODIUM
     Indication: Philadelphia chromosome negative
     Dosage: 12 MG, SCHEDULE: DAY 2, DAY 8; CYCLE: 1-4, CYCLIC, ONGOING
     Route: 037
     Dates: start: 20240126
  13. METHOTREXATE SODIUM [Suspect]
     Active Substance: METHOTREXATE SODIUM
     Indication: B-cell type acute leukaemia
     Dosage: 250 MG/M2, SCHEDULE: DAY 1; CYCLE: 2,4, 6, 8, CYCLICAL, TOTAL DOSE ADMINISTERED IN COURSE 2 WAS 435
     Route: 042
     Dates: start: 20240217, end: 20240217
  14. METHYLPREDNISOLONE ACETATE [Suspect]
     Active Substance: METHYLPREDNISOLONE ACETATE
     Indication: Philadelphia chromosome negative
     Dosage: 50 MG, EVERY 12 HRS X 6 DOSES, DAYS 1- 3, CYCLE: 2, 4, 6, 8, CYCLIC (TOTAL DOSE ADMINISTERED IN COUR
     Route: 042
     Dates: start: 20240217
  15. METHYLPREDNISOLONE ACETATE [Suspect]
     Active Substance: METHYLPREDNISOLONE ACETATE
     Indication: B-cell type acute leukaemia
     Dosage: 50 MG, CYCLICAL, LAST DOSE ADMINISTERED PRIOR TO EVENT
     Route: 042
     Dates: start: 20240220, end: 20240220
  16. RITUXIMAB [Suspect]
     Active Substance: RITUXIMAB
     Indication: Philadelphia chromosome negative
     Dosage: 375 MG/M2, DAY 2, DAY 8; CYCLE: 1-4, CYCLIC (TOTAL DOSE ADMINISTERED IN COURSE 2 WAS 600 MG), ONGOIN
     Route: 042
     Dates: start: 20240126
  17. RITUXIMAB [Suspect]
     Active Substance: RITUXIMAB
     Indication: B-cell type acute leukaemia
     Dosage: 375 MG/M2, CYCLICAL, LAST DOSE ADMINISTERED PRIOR TO EVENT
     Route: 042
     Dates: start: 20240227, end: 20240227
  18. VINCRISTINE SULFATE [Suspect]
     Active Substance: VINCRISTINE SULFATE
     Indication: Philadelphia chromosome negative
     Dosage: 2 MG, DAY 1, DAY 8; CYCLE: 1, 3, 5, 7, CYCLIC, ONGOING, AS A PART OF INOTUZUMAB OZOGAMICIN + MINI-HY
     Route: 042
     Dates: start: 20240125
  19. VINCRISTINE SULFATE [Suspect]
     Active Substance: VINCRISTINE SULFATE
     Indication: B-cell type acute leukaemia
     Dosage: 2 MG, CYCLIC, LAST DOSE ADMINISTERED PRIOR TO EVENT
     Route: 042
     Dates: start: 20240202, end: 20240202

REACTIONS (6)
  - Infusion related reaction [Recovering/Resolving]
  - Sepsis [Recovering/Resolving]
  - Pneumonia aspiration [Recovering/Resolving]
  - Delirium [Recovering/Resolving]
  - Febrile neutropenia [Recovering/Resolving]
  - Hypotension [Recovering/Resolving]

NARRATIVE: CASE EVENT DATE: 20240227
